FAERS Safety Report 4462010-8 (Version None)
Quarter: 2004Q3

REPORT INFORMATION
  Report Type: 
  Country: None (occurrence: None)
  Receive Date: 20040929
  Receipt Date: 20040921
  Transmission Date: 20050211
  Serious: Yes (Death)
  Sender: FDA-Public Use
  Company Number: BE-JNJFOC-20040902393

PATIENT
  Age: 64 Year
  Sex: Male

DRUGS (4)
  1. PROPULSID [Suspect]
     Indication: SCLERODERMA
     Route: 049
     Dates: start: 19970101
  2. PROPULSID [Suspect]
     Route: 049
     Dates: start: 19970101
  3. PROPULSID [Suspect]
     Route: 049
     Dates: start: 19970101
  4. OMEPRAZOLE [Concomitant]
     Route: 049

REACTIONS (1)
  - RUPTURED CEREBRAL ANEURYSM [None]
